FAERS Safety Report 10008718 (Version 1)
Quarter: 2014Q1

REPORT INFORMATION
  Report Type: Spontaneous
  Country: US (occurrence: US)
  Receive Date: 20140312
  Receipt Date: 20140312
  Transmission Date: 20141002
  Serious: No
  Sender: FDA-Public Use
  Company Number: US-INCYTE CORPORATION-2012IN000684

PATIENT
  Age: 71 Year
  Sex: Female

DRUGS (1)
  1. JAKAFI [Suspect]
     Indication: RED BLOOD CELL COUNT DECREASED
     Dosage: 20 MG, BID
     Route: 048
     Dates: end: 20120420

REACTIONS (3)
  - Splenomegaly [Unknown]
  - Red blood cell count decreased [Unknown]
  - No therapeutic response [None]
